FAERS Safety Report 9774886 (Version 1)
Quarter: 2013Q4

REPORT INFORMATION
  Report Type: Spontaneous
  Country: US (occurrence: US)
  Receive Date: 20131220
  Receipt Date: 20131220
  Transmission Date: 20140711
  Serious: No
  Sender: FDA-Public Use
  Company Number: US-GLAXOSMITHKLINE-A1007680A

PATIENT
  Age: 75 Year
  Sex: Male

DRUGS (10)
  1. AVODART [Suspect]
     Indication: BENIGN PROSTATIC HYPERPLASIA
     Dosage: .5MG PER DAY
     Route: 048
     Dates: start: 20121228, end: 20130102
  2. JALYN [Suspect]
     Indication: BENIGN PROSTATIC HYPERPLASIA
     Dosage: 1CAP PER DAY
     Route: 048
     Dates: start: 20121219, end: 20121225
  3. FLOMAX [Concomitant]
  4. METOPROLOL [Concomitant]
  5. LIPITOR [Concomitant]
  6. UNKNOWN MEDICATION [Concomitant]
  7. PLAVIX [Concomitant]
  8. LESTEROL [Concomitant]
  9. TEMAZEPAM [Concomitant]
  10. TRAZODONE [Concomitant]

REACTIONS (6)
  - Lip swelling [Unknown]
  - Hypoaesthesia oral [Unknown]
  - Cheilitis [Unknown]
  - Lip dry [Unknown]
  - Lip disorder [Unknown]
  - Dyskinesia [Unknown]
